FAERS Safety Report 25453125 (Version 1)
Quarter: 2025Q2

REPORT INFORMATION
  Report Type: Report from Study
  Country: US (occurrence: US)
  Receive Date: 20250618
  Receipt Date: 20250618
  Transmission Date: 20250716
  Serious: Yes (Hospitalization, Other)
  Sender: GILEAD
  Company Number: US-GILEAD-2025-0717460

PATIENT
  Sex: Female

DRUGS (9)
  1. AZTREONAM LYSINE [Suspect]
     Active Substance: AZTREONAM LYSINE
     Indication: Cystic fibrosis
     Dosage: THREE TIMES DAILY (IN THE MORNING, AT NOON AND BEFORE BEDTIME). USE FOR 28 DAYS ON AND 28 DAYS OFF.
     Route: 065
  2. LEVALBUTEROL CONCENTRATE [Concomitant]
  3. SYMBICORT [Concomitant]
     Active Substance: BUDESONIDE\FORMOTEROL FUMARATE DIHYDRATE
  4. LINZESS [Concomitant]
     Active Substance: LINACLOTIDE
  5. SPIRIVA [Concomitant]
     Active Substance: TIOTROPIUM BROMIDE MONOHYDRATE
  6. MONTELUKAST SODIUM [Concomitant]
     Active Substance: MONTELUKAST SODIUM
  7. ESTRADIOL [Concomitant]
     Active Substance: ESTRADIOL
  8. PULMOZYME [Concomitant]
     Active Substance: DORNASE ALFA
  9. OMEPRAZOLE [Concomitant]
     Active Substance: OMEPRAZOLE

REACTIONS (2)
  - Pneumonia [Unknown]
  - Cystic fibrosis [Unknown]
